FAERS Safety Report 7809790-9 (Version None)
Quarter: 2011Q4

REPORT INFORMATION
  Report Type: 
  Country: None (occurrence: None)
  Receive Date: 20111012
  Receipt Date: 20111003
  Transmission Date: 20120403
  Serious: Yes (Death)
  Sender: FDA-Public Use
  Company Number: US-PURDUE-USA-2011-0074679

PATIENT
  Sex: Male
  Weight: 113.38 kg

DRUGS (1)
  1. BUTRANS [Suspect]
     Indication: PAIN
     Dosage: 20 MCG, Q1H
     Route: 062

REACTIONS (7)
  - DRUG WITHDRAWAL SYNDROME [None]
  - AGITATION [None]
  - MYOCARDIAL INFARCTION [None]
  - AGGRESSION [None]
  - OVERDOSE [None]
  - ANGER [None]
  - HYPERHIDROSIS [None]
